FAERS Safety Report 23042164 (Version 1)
Quarter: 2023Q4

REPORT INFORMATION
  Report Type: Spontaneous
  Country: US (occurrence: US)
  Receive Date: 20231008
  Receipt Date: 20231008
  Transmission Date: 20240109
  Serious: No
  Sender: FDA-Public Use
  Company Number: US-SANDOZ-SDZ2023US038248

PATIENT
  Sex: Female

DRUGS (6)
  1. CYCLOBENZAPRINE [Suspect]
     Active Substance: CYCLOBENZAPRINE
     Indication: Psoriatic arthropathy
     Route: 065
  2. METHOTREXATE [Suspect]
     Active Substance: METHOTREXATE
     Indication: Psoriatic arthropathy
     Route: 065
  3. METHOTREXATE [Suspect]
     Active Substance: METHOTREXATE
     Indication: Psoriatic arthropathy
     Route: 065
  4. RIZATRIPTAN [Suspect]
     Active Substance: RIZATRIPTAN
     Indication: Psoriatic arthropathy
     Route: 065
  5. RIZATRIPTAN [Suspect]
     Active Substance: RIZATRIPTAN
     Indication: Headache
  6. TRAMADOL [Suspect]
     Active Substance: TRAMADOL\TRAMADOL HYDROCHLORIDE
     Indication: Psoriatic arthropathy
     Route: 065

REACTIONS (2)
  - Spondylitis [Unknown]
  - Therapeutic product effect incomplete [Unknown]
